FAERS Safety Report 13350834 (Version 1)
Quarter: 2017Q1

REPORT INFORMATION
  Report Type: Spontaneous
  Country: GB (occurrence: GB)
  Receive Date: 20170320
  Receipt Date: 20170320
  Transmission Date: 20170429
  Serious: Yes (Other)
  Sender: FDA-Public Use
  Company Number: GB-JNJFOC-20170318021

PATIENT
  Age: 47 Year
  Sex: Male
  Weight: 126.5 kg

DRUGS (1)
  1. XARELTO [Suspect]
     Active Substance: RIVAROXABAN
     Indication: PULMONARY EMBOLISM
     Route: 048
     Dates: start: 20160914, end: 20170212

REACTIONS (4)
  - Abdominal pain [Recovering/Resolving]
  - Abnormal weight gain [Recovering/Resolving]
  - Lethargy [Recovering/Resolving]
  - Arthritis [Recovering/Resolving]

NARRATIVE: CASE EVENT DATE: 20160914
